FAERS Safety Report 8516263 (Version 5)
Quarter: 2013Q1

REPORT INFORMATION
  Report Type: Spontaneous
  Country: US (occurrence: US)
  Receive Date: 20120417
  Receipt Date: 20130320
  Transmission Date: 20140127
  Serious: No
  Sender: FDA-Public Use
  Company Number: US-ASTRAZENECA-2011SE30222

PATIENT
  Age: 48 Year
  Sex: Female

DRUGS (3)
  1. NEXIUM [Suspect]
     Indication: GASTROOESOPHAGEAL REFLUX DISEASE
     Route: 048
  2. PRILOSEC [Suspect]
     Route: 048
  3. PRILOSEC OTC [Suspect]
     Route: 048

REACTIONS (22)
  - Gastrooesophageal reflux disease [Unknown]
  - Aspiration [Unknown]
  - Sleep disorder due to a general medical condition [Unknown]
  - Choking [Unknown]
  - Aphagia [Unknown]
  - Throat irritation [Unknown]
  - Oesophageal pain [Unknown]
  - Abdominal distension [Unknown]
  - Road traffic accident [Unknown]
  - Hyperchlorhydria [Unknown]
  - Feeling abnormal [Unknown]
  - Regurgitation [Unknown]
  - Dysphonia [Unknown]
  - Feeling abnormal [Unknown]
  - Cough [Unknown]
  - Dyspepsia [Unknown]
  - Malaise [Unknown]
  - Insomnia [Unknown]
  - Vomiting [Unknown]
  - Retching [Unknown]
  - Drug dose omission [Unknown]
  - Drug ineffective [Unknown]
